FAERS Safety Report 19043494 (Version 1)
Quarter: 2021Q1

REPORT INFORMATION
  Report Type: Report from Study
  Country: JP (occurrence: JP)
  Receive Date: 20210323
  Receipt Date: 20210323
  Transmission Date: 20210420
  Serious: Yes (Death, Hospitalization)
  Sender: FDA-Public Use
  Company Number: JP-JNJFOC-A-CH2019-198811

PATIENT
  Age: 88 Year
  Sex: Female
  Weight: 48.4 kg

DRUGS (18)
  1. CEFTRIAXONE NA [Concomitant]
     Active Substance: CEFTRIAXONE
  2. LIPLE [Concomitant]
     Active Substance: ALPROSTADIL
  3. KAYEXALATE [Concomitant]
     Active Substance: SODIUM POLYSTYRENE SULFONATE
  4. TRAMCET [Concomitant]
     Active Substance: ACETAMINOPHEN\TRAMADOL
  5. PROSTANDIN [Concomitant]
  6. TRACLEER [Suspect]
     Active Substance: BOSENTAN
     Indication: SCLERODERMA ASSOCIATED DIGITAL ULCER
     Dosage: 62.5 MG, BID
     Route: 048
     Dates: start: 20171005, end: 20171101
  7. LANSOPRAZOLE. [Concomitant]
     Active Substance: LANSOPRAZOLE
  8. ANPLAG [Concomitant]
     Active Substance: SARPOGRELATE
  9. FIBLAST [Concomitant]
  10. AMLODIPINE [Concomitant]
     Active Substance: AMLODIPINE BESYLATE
  11. LASIX [Concomitant]
     Active Substance: FUROSEMIDE
  12. KIPRES [Concomitant]
     Active Substance: MONTELUKAST SODIUM
  13. CLARITHROMYCIN. [Concomitant]
     Active Substance: CLARITHROMYCIN
  14. PREDNISOLONE. [Concomitant]
     Active Substance: PREDNISOLONE
  15. LIMAPROST ALFADEX [Concomitant]
     Active Substance: LIMAPROST
  16. JUVELA N [Concomitant]
     Active Substance: TOCOPHERYL NICOTINATE, D-.ALPHA.
  17. FEBURIC [Concomitant]
     Active Substance: FEBUXOSTAT
  18. FLAVERIC [Concomitant]
     Active Substance: BENPROPERINE PHOSPHATE

REACTIONS (2)
  - Azotaemia [Unknown]
  - Cardiac failure [Fatal]

NARRATIVE: CASE EVENT DATE: 201711
